FAERS Safety Report 4587495-8 (Version None)
Quarter: 2005Q1

REPORT INFORMATION
  Report Type: 
  Country: None (occurrence: None)
  Receive Date: 20050215
  Receipt Date: 20050202
  Transmission Date: 20050727
  Serious: Yes (Other)
  Sender: FDA-Public Use
  Company Number: 2004097395

PATIENT
  Age: 65 Year
  Sex: Female
  Weight: 65.7716 kg

DRUGS (8)
  1. CELEBREX [Suspect]
     Indication: ARTHRALGIA
     Dosage: 200 - 400 MG (200 MG, 1 - 2 TIMES DAILY), ORAL
     Route: 048
     Dates: start: 20040201, end: 20041101
  2. CELEBREX [Suspect]
     Indication: OSTEOARTHRITIS
     Dosage: 200 - 400 MG (200 MG, 1 - 2 TIMES DAILY), ORAL
     Route: 048
     Dates: start: 20040201, end: 20041101
  3. ZITHROMAX [Suspect]
     Indication: NASOPHARYNGITIS
     Dosage: ORAL
     Route: 048
     Dates: start: 20040923, end: 20040928
  4. ZITHROMAX [Suspect]
     Indication: UPPER RESPIRATORY TRACT INFECTION
     Dosage: ORAL
     Route: 048
     Dates: start: 20040923, end: 20040928
  5. DOXYCYCLINE [Suspect]
     Indication: NASOPHARYNGITIS
     Dosage: ORAL
     Route: 048
     Dates: start: 20040101, end: 20040101
  6. VITAMINS (VITAMINS) [Concomitant]
  7. LEVOTHYROXINE SODIUM [Concomitant]
  8. ERYTHROMYCIN [Concomitant]

REACTIONS (11)
  - DRUG INEFFECTIVE [None]
  - HYPERSENSITIVITY [None]
  - HYPOTHYROIDISM [None]
  - NASOPHARYNGITIS [None]
  - ORAL MUCOSAL BLISTERING [None]
  - RESPIRATORY DISORDER [None]
  - SINUS CONGESTION [None]
  - SINUS HEADACHE [None]
  - SWOLLEN TONGUE [None]
  - UPPER RESPIRATORY TRACT INFECTION [None]
  - VITREOUS FLOATERS [None]
